FAERS Safety Report 23708317 (Version 1)
Quarter: 2024Q2

REPORT INFORMATION
  Report Type: Spontaneous
  Country: PL (occurrence: PL)
  Receive Date: 20240404
  Receipt Date: 20240404
  Transmission Date: 20240716
  Serious: Yes (Other)
  Sender: FDA-Public Use
  Company Number: PL-AMGEN-POLSP2024053154

PATIENT
  Age: 77 Year
  Sex: Female

DRUGS (6)
  1. IRINOTECAN [Suspect]
     Active Substance: IRINOTECAN
     Indication: Colorectal cancer metastatic
     Dosage: 180 MILLIGRAM/SQ. METER ( IV. DAY 1)  14 DAY RHYTHM
     Route: 042
     Dates: start: 20220408
  2. FLUOROURACIL [Suspect]
     Active Substance: FLUOROURACIL
     Indication: Colorectal cancer metastatic
     Dosage: 600 MILLIGRAM/SQ. METER ( IV. - 22 HOUR INFUSION DAY 1 - 2)
     Route: 042
  3. FLUOROURACIL [Suspect]
     Active Substance: FLUOROURACIL
     Dosage: 400 MILLIGRAM/SQ. METER ( IV. BOLUS DAY 1 - 2)  14 DAY RHYTHM
     Route: 042
     Dates: start: 20220408
  4. LEVOLEUCOVORIN DISODIUM [Suspect]
     Active Substance: LEVOLEUCOVORIN DISODIUM
     Indication: Colorectal cancer metastatic
     Dosage: 100 MILLIGRAM/SQ. METER (IV. 2 HOUR INFUSION DAY 1-2)  14 DAY RHYTHM
     Route: 042
     Dates: start: 20220408
  5. VECTIBIX [Suspect]
     Active Substance: PANITUMUMAB
     Indication: Colorectal cancer metastatic
     Dosage: 6 MILLIGRAM/KILOGRAM (6 MG/KG BODY WEIGHT 1 HOUR INFUSION DAY 1) 14 DAY RHYTHM
     Route: 065
     Dates: start: 20220408
  6. ELIQUIS [Concomitant]
     Active Substance: APIXABAN
     Indication: Product used for unknown indication
     Dosage: 10 MILLIGRAM, ONCE A DAY
     Route: 065

REACTIONS (6)
  - Depilation [Unknown]
  - Diarrhoea [Unknown]
  - Rash [Recovered/Resolved]
  - Palmar-plantar erythrodysaesthesia syndrome [Unknown]
  - Anaemia [Unknown]
  - Hypomagnesaemia [Unknown]
